FAERS Safety Report 6819895-7 (Version None)
Quarter: 2010Q3

REPORT INFORMATION
  Report Type: 
  Country: None (occurrence: None)
  Receive Date: 20100707
  Receipt Date: 20100629
  Transmission Date: 20110219
  Serious: Yes (Hospitalization, Other)
  Sender: FDA-Public Use
  Company Number: MX-ROCHE-611817

PATIENT
  Sex: Male
  Weight: 67 kg

DRUGS (6)
  1. METHOXY POLYETHYLENE GLYCOL-EPOETIN BETA [Suspect]
     Dosage: DOSAGE FROM : INFUSION
     Route: 058
     Dates: start: 20090102
  2. SEVELAMER [Concomitant]
     Dates: start: 20040801
  3. CALCITRIOL [Concomitant]
     Dates: start: 20040801
  4. ALLOPURINOL [Concomitant]
     Dates: start: 20040801
  5. GLIBENCLAMIDE [Concomitant]
     Dates: start: 20040801
  6. VERAPAMIL [Concomitant]
     Dates: start: 20090126, end: 20090126

REACTIONS (4)
  - ANGINA PECTORIS [None]
  - BRADYCARDIA [None]
  - HYPOTENSION [None]
  - SUPRAVENTRICULAR TACHYCARDIA [None]
